APPROVED DRUG PRODUCT: LEUPROLIDE ACETATE
Active Ingredient: LEUPROLIDE ACETATE
Strength: 14MG/2.8ML (1MG/0.2ML)
Dosage Form/Route: SOLUTION;SUBCUTANEOUS
Application: A078885 | Product #001 | TE Code: AP
Applicant: SUN PHARMACEUTICAL INDUSTRIES LTD
Approved: Mar 9, 2009 | RLD: No | RS: No | Type: RX